FAERS Safety Report 14796832 (Version 3)
Quarter: 2018Q2

REPORT INFORMATION
  Report Type: Report from Study
  Country: US (occurrence: US)
  Receive Date: 20180423
  Receipt Date: 20180531
  Transmission Date: 20180711
  Serious: Yes (Other)
  Sender: FDA-Public Use
  Company Number: US-AMGEN-USASL2018050887

PATIENT
  Age: 78 Year
  Sex: Female
  Weight: 82.86 kg

DRUGS (4)
  1. ISOSORBIDE. [Concomitant]
     Active Substance: ISOSORBIDE
     Indication: HYPERTENSION
     Dosage: 30 MG, QD
     Dates: start: 2018
  2. SULAR [Concomitant]
     Active Substance: NISOLDIPINE
     Indication: HYPERTENSION
     Dosage: 34 MG, QD
     Dates: start: 2012
  3. REPATHA [Suspect]
     Active Substance: EVOLOCUMAB
     Indication: PRODUCT USED FOR UNKNOWN INDICATION
     Dosage: 140 MG, Q2WK
     Route: 065
     Dates: start: 20170209, end: 2017
  4. HYDRALAZINE [Concomitant]
     Active Substance: HYDRALAZINE HYDROCHLORIDE
     Dosage: 100 MG, TID
     Dates: start: 2012

REACTIONS (3)
  - Drug hypersensitivity [Unknown]
  - Pruritus [Recovering/Resolving]
  - Rash macular [Unknown]

NARRATIVE: CASE EVENT DATE: 20170210
